FAERS Safety Report 10401889 (Version 1)
Quarter: 2014Q3

REPORT INFORMATION
  Report Type: Spontaneous
  Country: GB (occurrence: None)
  Receive Date: 20140820
  Receipt Date: 20140820
  Transmission Date: 20150326
  Serious: Yes (Hospitalization, Disabling)
  Sender: FDA-Public Use
  Company Number: FK201403318

PATIENT
  Age: 74 Year
  Sex: Female

DRUGS (6)
  1. TILDIEM LA (DILTIAZEM HYDROCHLORIDE) [Concomitant]
  2. WARFARIN (WARFARIN) [Concomitant]
     Active Substance: WARFARIN
  3. METHOTREXATE [Suspect]
     Active Substance: METHOTREXATE
     Indication: CROHN^S DISEASE
     Dosage: 25 MG, 1 IN 1 WK, SUBCUTANEOUS?
     Route: 058
     Dates: start: 201208, end: 201310
  4. FOLIC ACID (FOLIC ACID) [Concomitant]
     Active Substance: FOLIC ACID
  5. LAXIDO (ELECTROLYTES NOS W/ MACROGOL 3350) [Concomitant]
  6. OMEPRAZOLE (OMEPRAZOLE) [Concomitant]
     Active Substance: OMEPRAZOLE

REACTIONS (2)
  - Osteopenia [None]
  - Fracture nonunion [None]

NARRATIVE: CASE EVENT DATE: 20130708
